FAERS Safety Report 6497019-6 (Version None)
Quarter: 2009Q4

REPORT INFORMATION
  Report Type: 
  Country: None (occurrence: None)
  Receive Date: 20091215
  Receipt Date: 20090119
  Transmission Date: 20100525
  Serious: No
  Sender: FDA-Public Use
  Company Number: A0762350A

PATIENT
  Sex: Male

DRUGS (7)
  1. AVODART [Suspect]
     Indication: BENIGN PROSTATIC HYPERPLASIA
     Route: 048
     Dates: start: 20081118
  2. AVODART [Suspect]
     Dosage: .5MG PER DAY
     Route: 048
     Dates: start: 20080101
  3. HYZAAR [Concomitant]
  4. NORVASC [Concomitant]
  5. AMBIEN [Concomitant]
  6. LIPITOR [Concomitant]
  7. HYDROCODONE [Concomitant]

REACTIONS (4)
  - ABDOMINAL PAIN [None]
  - DRUG ADMINISTRATION ERROR [None]
  - DRUG INEFFECTIVE [None]
  - PRODUCT QUALITY ISSUE [None]
